FAERS Safety Report 21662180 (Version 4)
Quarter: 2023Q1

REPORT INFORMATION
  Report Type: Spontaneous
  Country: US (occurrence: US)
  Receive Date: 20221130
  Receipt Date: 20230113
  Transmission Date: 20230418
  Serious: No
  Sender: FDA-Public Use
  Company Number: US-PFIZER INC-PV202200113003

PATIENT
  Age: 61 Year
  Sex: Female

DRUGS (1)
  1. IBRANCE [Suspect]
     Active Substance: PALBOCICLIB
     Dosage: 125 MG (TAKING HER IBRANCE AT 4PM.)

REACTIONS (9)
  - Headache [Unknown]
  - Throat irritation [Unknown]
  - Alopecia [Unknown]
  - Nausea [Unknown]
  - Dizziness [Unknown]
  - Hot flush [Unknown]
  - Product dose omission in error [Unknown]
  - Rhinalgia [Unknown]
  - White blood cell count decreased [Unknown]

NARRATIVE: CASE EVENT DATE: 20220101
